FAERS Safety Report 6234826-9 (Version None)
Quarter: 2009Q2

REPORT INFORMATION
  Report Type: 
  Country: None (occurrence: None)
  Receive Date: 20090615
  Receipt Date: 20090610
  Transmission Date: 20091009
  Serious: Yes (Hospitalization)
  Sender: FDA-Public Use
  Company Number: FR-WYE-G03826309

PATIENT
  Age: 3 Year
  Sex: Male

DRUGS (9)
  1. TAZOCILLINE (PIPERACILLIN/TAZOBACTAM, INJECTION) [Suspect]
     Dosage: 1.2 G 3X PER 1 DAY INTRAVENOUS
     Route: 042
     Dates: start: 20090415, end: 20090509
  2. INEXIUM (ESOMEPRAZOLE, , 0) [Suspect]
     Dosage: 15 MG 1X PER 1 DAY
     Dates: start: 20090430
  3. ACETAMINOPHEN [Suspect]
     Dates: start: 20090430
  4. URSODIOL [Concomitant]
  5. VOGALENE (METOPIMAZINE) [Concomitant]
  6. PHYTONADIONE [Concomitant]
  7. UVESTEROL (ASCORBIC ACID/ERGOCALCIFEROL/RETINOL/TOCOPHEROL) [Concomitant]
  8. NUBAIN [Concomitant]
  9. MICONAZOLE NITRATE [Concomitant]

REACTIONS (2)
  - CHOLESTASIS [None]
  - FEBRILE BONE MARROW APLASIA [None]
